FAERS Safety Report 5567688-3 (Version None)
Quarter: 2007Q4

REPORT INFORMATION
  Report Type: 
  Country: None (occurrence: None)
  Receive Date: 20071217
  Receipt Date: 20071208
  Transmission Date: 20080405
  Serious: Yes (Disabling, Other)
  Sender: FDA-Public Use
  Company Number: CHPA2007US13492

PATIENT
  Age: 23 Year
  Sex: Male

DRUGS (1)
  1. TRIAMINIC SRT [Suspect]
     Dosage: QD FOR 3 YEARS, ORAL
     Route: 048
     Dates: start: 19870401, end: 20000101

REACTIONS (6)
  - ATTENTION DEFICIT/HYPERACTIVITY DISORDER [None]
  - IMPAIRED WORK ABILITY [None]
  - NERVOUS SYSTEM DISORDER [None]
  - PERSONALITY DISORDER [None]
  - SCHIZOPHRENIA [None]
  - SUICIDAL IDEATION [None]
